FAERS Safety Report 7481379-3 (Version None)
Quarter: 2011Q2

REPORT INFORMATION
  Report Type: 
  Country: None (occurrence: None)
  Receive Date: 20110516
  Receipt Date: 20110505
  Transmission Date: 20111010
  Serious: Yes (Other)
  Sender: FDA-Public Use
  Company Number: RU-ASTRAZENECA-2011SE26730

PATIENT
  Age: 16 Year
  Sex: Female
  Weight: 50 kg

DRUGS (2)
  1. MOTILIUM [Interacting]
     Indication: GASTROOESOPHAGEAL REFLUX DISEASE
     Route: 048
     Dates: start: 20110101, end: 20110210
  2. NEXIUM [Suspect]
     Indication: GASTRITIS EROSIVE
     Route: 048
     Dates: start: 20110107, end: 20110210

REACTIONS (4)
  - GALACTORRHOEA [None]
  - MENSTRUAL DISORDER [None]
  - AMENORRHOEA [None]
  - OESOPHAGOGASTRODUODENOSCOPY [None]
